FAERS Safety Report 4276134-1 (Version None)
Quarter: 2004Q1

REPORT INFORMATION
  Report Type: 
  Country: None (occurrence: None)
  Receive Date: 20040121
  Receipt Date: 20031027
  Transmission Date: 20041129
  Serious: No
  Sender: FDA-Public Use
  Company Number: US-GLAXOSMITHKLINE-A0431752A

PATIENT
  Age: 51 Year
  Sex: Female

DRUGS (5)
  1. VALTREX [Suspect]
     Indication: EPSTEIN-BARR VIRUS INFECTION
     Dosage: 500MG THREE TIMES PER DAY
     Route: 048
     Dates: start: 20030801, end: 20030927
  2. VALTREX [Suspect]
     Dosage: 250MG PER DAY
     Route: 048
     Dates: start: 20031025
  3. FLUOXETINE [Concomitant]
  4. MAXZIDE [Concomitant]
  5. PREVACID [Concomitant]

REACTIONS (3)
  - HEADACHE [None]
  - NAUSEA [None]
  - UNEXPECTED THERAPEUTIC DRUG EFFECT [None]
